FAERS Safety Report 25582786 (Version 1)
Quarter: 2025Q3

REPORT INFORMATION
  Report Type: Report from Study
  Country: US (occurrence: US)
  Receive Date: 20250720
  Receipt Date: 20250720
  Transmission Date: 20251020
  Serious: Yes (Other)
  Sender: ABBVIE
  Company Number: US-ABBVIE-6376265

PATIENT
  Age: 45 Year
  Sex: Female
  Weight: 65 kg

DRUGS (1)
  1. RINVOQ [Suspect]
     Active Substance: UPADACITINIB
     Indication: Rheumatoid arthritis
     Route: 048
     Dates: start: 20210902

REACTIONS (1)
  - Gastric banding reversal [Unknown]

NARRATIVE: CASE EVENT DATE: 20250303
